FAERS Safety Report 8422504-7 (Version None)
Quarter: 2012Q2

REPORT INFORMATION
  Report Type: 
  Country: None (occurrence: None)
  Receive Date: 20120608
  Receipt Date: 20120601
  Transmission Date: 20120825
  Serious: Yes (Other)
  Sender: FDA-Public Use
  Company Number: US-ABBOTT-12P-163-0941650-00

PATIENT
  Sex: Female

DRUGS (1)
  1. HUMIRA [Suspect]
     Indication: RHEUMATOID ARTHRITIS
     Route: 058
     Dates: start: 20120509, end: 20120530

REACTIONS (5)
  - NEUROPATHY PERIPHERAL [None]
  - DIZZINESS [None]
  - DYSPNOEA [None]
  - OEDEMA [None]
  - DIARRHOEA [None]
